FAERS Safety Report 7414620-3 (Version None)
Quarter: 2011Q2

REPORT INFORMATION
  Report Type: 
  Country: None (occurrence: None)
  Receive Date: 20110411
  Receipt Date: 20110411
  Transmission Date: 20111010
  Serious: Yes (Hospitalization)
  Sender: FDA-Public Use
  Company Number: None

PATIENT
  Age: 39 Year
  Sex: Female
  Weight: 151.955 kg

DRUGS (2)
  1. CYMBALTA [Suspect]
     Indication: OSTEOARTHRITIS
     Dosage: 30MG 1 PO
     Route: 048
     Dates: start: 20081201, end: 20100701
  2. CYMBALTA [Suspect]
     Indication: DEPRESSION
     Dosage: 60MG 1 PO
     Route: 048
     Dates: start: 20080610, end: 20100701

REACTIONS (3)
  - DYSPEPSIA [None]
  - GALLBLADDER DISORDER [None]
  - CHOLECYSTECTOMY [None]
